FAERS Safety Report 6460275-4 (Version None)
Quarter: 2009Q4

REPORT INFORMATION
  Report Type: 
  Country: None (occurrence: None)
  Receive Date: 20091130
  Receipt Date: 20091118
  Transmission Date: 20100525
  Serious: Yes (Hospitalization)
  Sender: FDA-Public Use
  Company Number: PHHY2009DE51537

PATIENT
  Sex: Female
  Weight: 90 kg

DRUGS (3)
  1. ALISKIREN ALI+ [Suspect]
     Indication: HYPERTENSION
     Dosage: UNK
     Dates: start: 20090210, end: 20090828
  2. BETA BLOCKING AGENTS [Concomitant]
  3. PLATELET AGGREGATION INHIBITORS [Concomitant]

REACTIONS (4)
  - AGITATION [None]
  - HYPERTENSIVE CRISIS [None]
  - MICTURITION URGENCY [None]
  - PAIN [None]
